FAERS Safety Report 4715115-8 (Version None)
Quarter: 2005Q3

REPORT INFORMATION
  Report Type: 
  Country: None (occurrence: None)
  Receive Date: 20050715
  Receipt Date: 20050704
  Transmission Date: 20060218
  Serious: Yes (Hospitalization, Other)
  Sender: FDA-Public Use
  Company Number: NO-MERCK-0506NOR00044

PATIENT
  Age: 55 Year
  Sex: Female

DRUGS (3)
  1. VIOXX [Suspect]
     Indication: FIBROMYALGIA
     Route: 048
     Dates: start: 20030122, end: 20040201
  2. VIOXX [Suspect]
     Route: 048
     Dates: start: 20040101, end: 20040901
  3. TRIMIPRAMINE MALEATE [Concomitant]
     Route: 048

REACTIONS (4)
  - DUODENITIS [None]
  - GASTRITIS [None]
  - PULMONARY EMBOLISM [None]
  - THROMBOPHLEBITIS [None]
